FAERS Safety Report 11697855 (Version 1)
Quarter: 2015Q4

REPORT INFORMATION
  Report Type: Report from Study
  Country: US (occurrence: US)
  Receive Date: 20151104
  Receipt Date: 20151104
  Transmission Date: 20160304
  Serious: Yes (Hospitalization)
  Sender: FDA-Public Use
  Company Number: US-VERTEX PHARMACEUTICALS-2015-004208

PATIENT
  Age: 38 Year
  Sex: Male

DRUGS (4)
  1. LEVALBUTEROL. [Concomitant]
     Active Substance: LEVALBUTEROL
  2. REPAGLINIDE. [Concomitant]
     Active Substance: REPAGLINIDE
  3. SODIUM CHLORIDE. [Concomitant]
     Active Substance: SODIUM CHLORIDE
  4. ORKAMBI [Suspect]
     Active Substance: IVACAFTOR\LUMACAFTOR
     Indication: CYSTIC FIBROSIS
     Dosage: 400MG/250MG, BID
     Route: 048
     Dates: start: 20150920

REACTIONS (4)
  - Forced expiratory volume decreased [Unknown]
  - Dyspnoea [Unknown]
  - Insomnia [Unknown]
  - Chest pain [Unknown]

NARRATIVE: CASE EVENT DATE: 20150920
